FAERS Safety Report 4703234-1 (Version None)
Quarter: 2005Q2

REPORT INFORMATION
  Report Type: 
  Country: None (occurrence: None)
  Receive Date: 20050628
  Receipt Date: 20050610
  Transmission Date: 20051028
  Serious: Yes (Death, Hospitalization)
  Sender: FDA-Public Use
  Company Number: DSA_26618_2005

PATIENT
  Age: 63 Year
  Sex: Male
  Weight: 69 kg

DRUGS (5)
  1. ENALAPRIL MALEATE [Suspect]
     Indication: CARDIAC FAILURE CHRONIC
     Dosage: 5 MG Q DAY PO
     Route: 048
     Dates: start: 19950620, end: 19950620
  2. NADIC [Suspect]
     Indication: HEART RATE IRREGULAR
     Dosage: 15 MG Q DAY
     Dates: start: 19950620, end: 19950620
  3. NITOROL R [Concomitant]
  4. BUFFERIN [Concomitant]
  5. URALYT-U [Concomitant]

REACTIONS (13)
  - ASPARTATE AMINOTRANSFERASE INCREASED [None]
  - BLOOD CREATINE PHOSPHOKINASE INCREASED [None]
  - BLOOD LACTATE DEHYDROGENASE INCREASED [None]
  - BRADYCARDIA [None]
  - CONVULSION [None]
  - CYANOSIS [None]
  - EJECTION FRACTION DECREASED [None]
  - FEELING COLD [None]
  - HYPERHIDROSIS [None]
  - LOSS OF CONSCIOUSNESS [None]
  - MALAISE [None]
  - SHOCK [None]
  - VOMITING [None]
